FAERS Safety Report 13934879 (Version 3)
Quarter: 2017Q4

REPORT INFORMATION
  Report Type: Spontaneous
  Country: US (occurrence: US)
  Receive Date: 20170905
  Receipt Date: 20171024
  Transmission Date: 20180320
  Serious: Yes (Hospitalization, Other)
  Sender: FDA-Public Use
  Company Number: US-CELGENEUS-USA-20170809854

PATIENT
  Age: 86 Year
  Sex: Female
  Weight: 58.57 kg

DRUGS (1)
  1. REVLIMID [Suspect]
     Active Substance: LENALIDOMIDE
     Indication: PLASMA CELL MYELOMA
     Dosage: 10 MILLIGRAM
     Route: 048
     Dates: start: 20170609

REACTIONS (14)
  - Diarrhoea [Not Recovered/Not Resolved]
  - Spinal fracture [Unknown]
  - Somnolence [Unknown]
  - Hypertension [Unknown]
  - Anxiety [Unknown]
  - Hypoaesthesia [Unknown]
  - Insomnia [Unknown]
  - Back pain [Unknown]
  - Nausea [Unknown]
  - Atrial fibrillation [Not Recovered/Not Resolved]
  - Fatigue [Not Recovered/Not Resolved]
  - Blood potassium decreased [Unknown]
  - Depression [Unknown]
  - Muscular weakness [Unknown]

NARRATIVE: CASE EVENT DATE: 20170824
